FAERS Safety Report 9785806 (Version 1)
Quarter: 2013Q4

REPORT INFORMATION
  Report Type: Spontaneous
  Country: FR (occurrence: FR)
  Receive Date: 20131227
  Receipt Date: 20131227
  Transmission Date: 20140711
  Serious: Yes (Other)
  Sender: FDA-Public Use
  Company Number: FR-PFIZER INC-2013365641

PATIENT
  Age: 73 Year
  Sex: Female

DRUGS (9)
  1. RHINADVIL [Suspect]
  2. ACTIFED-A [Suspect]
     Dosage: 1 COURSE PER YEAR,  LESS THAN 5 DAYS EACH COURSE
  3. RHINATHIOL 355 [Suspect]
     Dosage: AT LEAST ONE BOX
  4. NUROFEN RHUME [Suspect]
  5. RHINOFLUIMUCIL [Suspect]
     Dosage: UNK
     Dates: start: 2009
  6. ATURGYL [Suspect]
     Dosage: UNK
     Dates: start: 201102
  7. DERINOX [Suspect]
     Dosage: UNK
     Dates: start: 201109
  8. BACLOFEN [Suspect]
     Indication: WEIGHT DECREASED
     Dosage: UNK
     Dates: start: 2008
  9. INEXIUM [Concomitant]
     Dosage: 40 MG, 2X/DAY (1 IN MORNING AND 1 IN EVENING)

REACTIONS (1)
  - Pulmonary arterial hypertension [Not Recovered/Not Resolved]
